FAERS Safety Report 12921341 (Version 2)
Quarter: 2017Q1

REPORT INFORMATION
  Report Type: Spontaneous
  Country: HR (occurrence: HR)
  Receive Date: 20161108
  Receipt Date: 20170112
  Transmission Date: 20170428
  Serious: Yes (Life-Threatening, Hospitalization)
  Sender: FDA-Public Use
  Company Number: PHHY2016HR149949

PATIENT
  Age: 61 Year
  Sex: Female
  Weight: 88 kg

DRUGS (13)
  1. VELAFAX [Suspect]
     Active Substance: VENLAFAXINE HYDROCHLORIDE
     Indication: MAJOR DEPRESSION
     Dosage: 75 MG, QD
     Route: 048
  2. LORISTA [Suspect]
     Active Substance: LOSARTAN POTASSIUM
     Indication: HYPERTENSION
     Route: 048
     Dates: start: 2015
  3. CERSON [Suspect]
     Active Substance: NITRAZEPAM
     Indication: MAJOR DEPRESSION
     Route: 048
  4. LORSILAN [Suspect]
     Active Substance: LORAZEPAM
     Indication: DEPRESSION
     Dosage: 2.5 MG
     Route: 048
     Dates: start: 2012
  5. EUTHYROX [Suspect]
     Active Substance: LEVOTHYROXINE SODIUM
     Indication: HYPOTHYROIDISM
     Dosage: 100 MCG
     Route: 048
  6. NEOFEN (IBUPROFEN) [Suspect]
     Active Substance: IBUPROFEN
     Indication: PRODUCT USED FOR UNKNOWN INDICATION
     Dosage: 400 MG;
     Route: 048
  7. SILYMARIN [Suspect]
     Active Substance: MILK THISTLE
     Indication: DRUG-INDUCED LIVER INJURY
     Route: 048
  8. CONTROLOC [Suspect]
     Active Substance: PANTOPRAZOLE SODIUM
     Indication: DYSPEPSIA
     Dosage: 40 MG
     Route: 048
     Dates: start: 201512
  9. SEROQUEL [Suspect]
     Active Substance: QUETIAPINE FUMARATE
     Indication: MAJOR DEPRESSION
     Route: 048
     Dates: start: 2012
  10. LORISTA H [Suspect]
     Active Substance: HYDROCHLOROTHIAZIDE\LOSARTAN POTASSIUM
     Indication: HYPERTENSION
     Route: 048
     Dates: start: 2015
  11. CONCOR COR [Suspect]
     Active Substance: BISOPROLOL FUMARATE
     Indication: PALPITATIONS
     Route: 048
  12. ZONADIN [Suspect]
     Active Substance: ZOLPIDEM TARTRATE
     Indication: INSOMNIA
     Route: 048
     Dates: start: 2012
  13. DICLAC DUO [Suspect]
     Active Substance: DICLOFENAC SODIUM
     Indication: OSTEOARTHRITIS
     Route: 048

REACTIONS (7)
  - Peritonitis [Recovered/Resolved]
  - Oophorectomy bilateral [Recovered/Resolved]
  - C-reactive protein increased [Recovered/Resolved]
  - Appendicectomy [Recovered/Resolved]
  - Abdominal pain [Recovered/Resolved]
  - Ultrasound abdomen abnormal [Recovered/Resolved]
  - Small intestinal perforation [Recovered/Resolved]

NARRATIVE: CASE EVENT DATE: 20161014
